FAERS Safety Report 9729757 (Version 2)
Quarter: 2015Q3

REPORT INFORMATION
  Report Type: Spontaneous
  Country: US (occurrence: US)
  Receive Date: 20131204
  Receipt Date: 20150804
  Transmission Date: 20151125
  Serious: No
  Sender: FDA-Public Use
  Company Number: US-GILEAD-2009-0022426

PATIENT
  Age: 63 Year
  Sex: Male
  Weight: 78.47 kg

DRUGS (16)
  1. NOVOLOG [Concomitant]
     Active Substance: INSULIN ASPART
  2. KETOCONAZOLE. [Concomitant]
     Active Substance: KETOCONAZOLE
  3. ASPIRIN. [Concomitant]
     Active Substance: ASPIRIN
  4. LETAIRIS [Suspect]
     Active Substance: AMBRISENTAN
     Indication: PULMONARY ARTERIAL HYPERTENSION
     Route: 048
     Dates: start: 20090520
  5. LANTUS [Concomitant]
     Active Substance: INSULIN GLARGINE
  6. HYDROCORTISONE. [Concomitant]
     Active Substance: HYDROCORTISONE
  7. DILTIAZEM [Concomitant]
     Active Substance: DILTIAZEM
  8. PROVIGIL [Concomitant]
     Active Substance: MODAFINIL
  9. MINOXIDIL. [Concomitant]
     Active Substance: MINOXIDIL
  10. ZOLADEX [Concomitant]
     Active Substance: GOSERELIN ACETATE
  11. LASIX [Concomitant]
     Active Substance: FUROSEMIDE
  12. ZOMETA [Concomitant]
     Active Substance: ZOLEDRONIC ACID
  13. CITALOPRAM [Concomitant]
     Active Substance: CITALOPRAM HYDROBROMIDE
  14. FISH OIL [Concomitant]
     Active Substance: FISH OIL
  15. CALCIUM + D [Concomitant]
     Active Substance: CALCIUM\VITAMIN D
  16. VITAMIN D [Concomitant]
     Active Substance: CHOLECALCIFEROL

REACTIONS (1)
  - Dyspnoea [Unknown]
